FAERS Safety Report 25666423 (Version 2)
Quarter: 2025Q3

REPORT INFORMATION
  Report Type: Report from Study
  Country: KR (occurrence: KR)
  Receive Date: 20250811
  Receipt Date: 20250829
  Transmission Date: 20251021
  Serious: Yes (Other)
  Sender: ASTELLAS
  Company Number: KR-ASTELLAS-2025-AER-036008

PATIENT
  Age: 72 Year
  Sex: Male
  Weight: 60 kg

DRUGS (27)
  1. ENFORTUMAB VEDOTIN-EJFV [Suspect]
     Active Substance: ENFORTUMAB VEDOTIN-EJFV
     Indication: Transitional cell carcinoma metastatic
     Route: 042
     Dates: start: 20240704
  2. ENFORTUMAB VEDOTIN-EJFV [Suspect]
     Active Substance: ENFORTUMAB VEDOTIN-EJFV
     Route: 042
     Dates: start: 20240711
  3. ENFORTUMAB VEDOTIN-EJFV [Suspect]
     Active Substance: ENFORTUMAB VEDOTIN-EJFV
     Route: 042
     Dates: start: 20240722
  4. ENFORTUMAB VEDOTIN-EJFV [Suspect]
     Active Substance: ENFORTUMAB VEDOTIN-EJFV
     Route: 042
     Dates: start: 20240805
  5. ENFORTUMAB VEDOTIN-EJFV [Suspect]
     Active Substance: ENFORTUMAB VEDOTIN-EJFV
     Route: 042
     Dates: start: 20240812
  6. ENFORTUMAB VEDOTIN-EJFV [Suspect]
     Active Substance: ENFORTUMAB VEDOTIN-EJFV
     Route: 042
     Dates: start: 20240829
  7. ENFORTUMAB VEDOTIN-EJFV [Suspect]
     Active Substance: ENFORTUMAB VEDOTIN-EJFV
     Route: 042
     Dates: start: 20240912
  8. ENFORTUMAB VEDOTIN-EJFV [Suspect]
     Active Substance: ENFORTUMAB VEDOTIN-EJFV
     Route: 042
     Dates: start: 20240919
  9. ENFORTUMAB VEDOTIN-EJFV [Suspect]
     Active Substance: ENFORTUMAB VEDOTIN-EJFV
     Route: 042
     Dates: start: 20240926
  10. HEBRON-F [Concomitant]
     Indication: Pulmonary mass
     Dosage: ONGOING
     Route: 048
     Dates: start: 20230804
  11. FEROBA YOU SR [Concomitant]
     Indication: Anaemia
     Route: 048
     Dates: start: 20230913, end: 20240826
  12. CODAEWON [Concomitant]
     Indication: Pulmonary mass
     Route: 048
     Dates: start: 20231218, end: 20240826
  13. CODAEWON [Concomitant]
     Dosage: ONGOING
     Route: 048
     Dates: start: 20240930
  14. PEDERO CR [Concomitant]
     Indication: Pulmonary mass
     Dosage: ONGOING
     Route: 048
     Dates: start: 20231218
  15. PROBIOTICS NOS [Concomitant]
     Active Substance: PROBIOTICS NOS
     Indication: Prophylaxis
     Route: 048
     Dates: start: 20240129, end: 20241030
  16. BETAGRON [Concomitant]
     Indication: Micturition urgency
     Dosage: ONGOING
     Route: 048
     Dates: start: 20240206
  17. TRESTAN [CYANOCOBALAMIN] [Concomitant]
     Indication: Prophylaxis
     Route: 048
     Dates: start: 20240522, end: 20241030
  18. NEWHYALUNI [Concomitant]
     Indication: Prophylaxis
     Route: 065
     Dates: start: 20240704, end: 20240715
  19. ALFURAL XL [Concomitant]
     Indication: Prophylaxis
     Dosage: ONGOING
     Route: 048
     Dates: start: 20230220
  20. PENIRAMIN [Concomitant]
     Indication: Prophylaxis
     Dosage: 1 AMPULE
     Route: 042
     Dates: start: 20240919, end: 20240919
  21. PENIRAMIN [Concomitant]
     Dosage: 1 AMPULE
     Route: 042
     Dates: start: 20240812, end: 20240812
  22. PENIRAMIN [Concomitant]
     Dosage: 1 AMPULE
     Route: 042
     Dates: start: 20241010, end: 20241010
  23. PREDISOL [METHYLPREDNISOLONE] [Concomitant]
     Indication: Prophylaxis
     Dosage: 0.32 VIAL
     Route: 042
     Dates: start: 20240919, end: 20240919
  24. PREDISOL [METHYLPREDNISOLONE] [Concomitant]
     Dosage: 0.32 VIAL
     Route: 042
     Dates: start: 20241010, end: 20241010
  25. PREDISOL [METHYLPREDNISOLONE] [Concomitant]
     Dosage: 0.32 VIAL
     Route: 042
     Dates: start: 20240812, end: 20240812
  26. SUPRAX [Concomitant]
     Active Substance: CEFIXIME
     Indication: Infection prophylaxis
     Dosage: 1 CAP PO
     Route: 048
     Dates: start: 20240819, end: 20240821
  27. SUPRAX [Concomitant]
     Active Substance: CEFIXIME
     Dosage: 1 CAP PO
     Route: 048
     Dates: start: 20240704, end: 20240710

REACTIONS (11)
  - Neuropathy peripheral [Recovered/Resolved]
  - Malnutrition [Recovered/Resolved]
  - Neuropathy peripheral [Recovered/Resolved]
  - Pruritus [Recovered/Resolved]
  - Cough [Recovered/Resolved]
  - Dermatitis [Recovered/Resolved]
  - Aspartate aminotransferase increased [Recovered/Resolved]
  - Chronic gastritis [Not Recovered/Not Resolved]
  - Erythema [Recovered/Resolved]
  - Glucose tolerance impaired [Not Recovered/Not Resolved]
  - Cough [Recovered/Resolved]

NARRATIVE: CASE EVENT DATE: 20240711
